FAERS Safety Report 18587228 (Version 1)
Quarter: 2020Q4

REPORT INFORMATION
  Report Type: Spontaneous
  Country: US (occurrence: US)
  Receive Date: 20201207
  Receipt Date: 20201207
  Transmission Date: 20210114
  Serious: No
  Sender: FDA-Public Use
  Company Number: US-PFIZER INC-2020479209

PATIENT
  Age: 65 Year
  Sex: Female
  Weight: 90.72 kg

DRUGS (1)
  1. PREMPRO [Suspect]
     Active Substance: ESTROGENS, CONJUGATED\MEDROXYPROGESTERONE ACETATE
     Indication: MENOPAUSAL SYMPTOMS
     Dosage: UNK, 1X/DAY (1/3 OF A TABLET)
     Route: 048

REACTIONS (4)
  - Metamorphopsia [Unknown]
  - Off label use [Unknown]
  - Vitreous floaters [Unknown]
  - Therapeutic response unexpected [Unknown]
